FAERS Safety Report 7138054-4 (Version None)
Quarter: 2010Q4

REPORT INFORMATION
  Report Type: 
  Country: None (occurrence: None)
  Receive Date: 20101105
  Receipt Date: 20091016
  Transmission Date: 20110411
  Serious: Yes (Other)
  Sender: FDA-Public Use
  Company Number: US-1171257

PATIENT
  Age: 68 Year
  Sex: Female
  Weight: 46.2669 kg

DRUGS (7)
  1. TOBRADEX [Suspect]
     Indication: BLEPHARITIS
     Dosage: (OPHTHALMIC)
     Route: 047
     Dates: start: 20080101, end: 20090802
  2. TRAVATAN Z [Concomitant]
  3. ERYTHROMYCIN [Concomitant]
  4. VIGAMOX [Concomitant]
  5. OMNIPRED [Concomitant]
  6. NEVANAC [Concomitant]
  7. CLARITIN [Concomitant]

REACTIONS (2)
  - CATARACT [None]
  - INTRAOCULAR PRESSURE INCREASED [None]
